FAERS Safety Report 8309716-8 (Version None)
Quarter: 2012Q2

REPORT INFORMATION
  Report Type: 
  Country: None (occurrence: None)
  Receive Date: 20120423
  Receipt Date: 20120409
  Transmission Date: 20120825
  Serious: Yes (Hospitalization)
  Sender: FDA-Public Use
  Company Number: NGX_01044_2012

PATIENT
  Sex: Female

DRUGS (7)
  1. QUTENZA [Suspect]
     Indication: POST HERPETIC NEURALGIA
     Dosage: (DF [STAT] TOPICAL)
     Route: 061
     Dates: start: 20120210, end: 20120210
  2. B12-VITAMIN [Concomitant]
  3. LANSOPRAZOLE [Concomitant]
  4. METFORMIN HCL [Concomitant]
  5. RISEDRONATE SODIUM [Concomitant]
  6. PREDNISOLONE [Concomitant]
  7. SIMVASTATIN [Concomitant]

REACTIONS (1)
  - GASTROENTERITIS [None]
